FAERS Safety Report 5035198-8 (Version None)
Quarter: 2006Q2

REPORT INFORMATION
  Report Type: 
  Country: None (occurrence: None)
  Receive Date: 20060622
  Receipt Date: 20060612
  Transmission Date: 20061013
  Serious: Yes (Hospitalization)
  Sender: FDA-Public Use
  Company Number: TCI2006A02312

PATIENT
  Age: 41 Year
  Sex: Male

DRUGS (5)
  1. ACTOS [Suspect]
     Indication: DIABETES MELLITUS
     Dosage: SEE IMAGE
     Route: 048
     Dates: start: 20060112, end: 20060423
  2. ACTOS [Suspect]
     Indication: DIABETES MELLITUS
     Dosage: SEE IMAGE
     Route: 048
     Dates: start: 20060424, end: 20060427
  3. BASEN OD TABLETS 0.3 (VOGLIBOSE) [Suspect]
     Indication: DIABETES MELLITUS
     Dosage: 0.9 MG (0.3 MG IN 1 D), PER ORAL
     Route: 048
     Dates: start: 20060112
  4. FASTIC (NATEGLINIDE) [Suspect]
     Indication: DIABETES MELLITUS
     Dosage: SEE IMAGE
     Route: 048
     Dates: start: 20060112, end: 20060608
  5. FASTIC (NATEGLINIDE) [Suspect]
     Indication: DIABETES MELLITUS
     Dosage: SEE IMAGE
     Route: 048
     Dates: start: 20060609

REACTIONS (2)
  - ERYTHEMA MULTIFORME [None]
  - GENERALISED OEDEMA [None]
